FAERS Safety Report 6603212-1 (Version None)
Quarter: 2010Q1

REPORT INFORMATION
  Report Type: 
  Country: None (occurrence: None)
  Receive Date: 20100219
  Receipt Date: 20100210
  Transmission Date: 20100710
  Serious: Yes (Other)
  Sender: FDA-Public Use
  Company Number: 502371

PATIENT
  Age: 50 Year
  Sex: Male

DRUGS (8)
  1. HEPARIN SODIUM INJECTION [Suspect]
     Indication: DRUG USE FOR UNKNOWN INDICATION
     Dosage: 5000 UNITS, 1 EVERY 8 HOURS, UNKNOWN, SUBCUTANEOUS
     Route: 058
  2. TAZOCIN [Suspect]
     Indication: DRUG USE FOR UNKNOWN INDICATION
     Dosage: 4.5 GRAM, 1 EVERY 8 HOURS, UNKNOWN, INTRAVENOUS
     Route: 042
  3. LORAZEPAM [Concomitant]
  4. MULTI-VITAMINS [Concomitant]
  5. SALBUTAMOL [Concomitant]
  6. GAURDIAN NICOTINE PATCHES [Concomitant]
  7. TYLENOL W/ CODEINE [Concomitant]
  8. ALTEPLASE [Concomitant]

REACTIONS (1)
  - RASH MACULAR [None]
